FAERS Safety Report 12816332 (Version 1)
Quarter: 2016Q4

REPORT INFORMATION
  Report Type: Spontaneous
  Country: AU (occurrence: AU)
  Receive Date: 20161006
  Receipt Date: 20161006
  Transmission Date: 20170207
  Serious: No
  Sender: FDA-Public Use
  Company Number: AU-NOVEN PHARMACEUTICALS, INC.-AU2016001396

PATIENT

DRUGS (1)
  1. ESTRADIOL/NORETHISTERONE ACETATE [Suspect]
     Active Substance: ESTRADIOL\NORETHINDRONE ACETATE
     Indication: PRODUCT USED FOR UNKNOWN INDICATION
     Dosage: UNK, UNKNOWN
     Route: 065

REACTIONS (8)
  - Product adhesion issue [Unknown]
  - Pruritus [Unknown]
  - Wrong technique in product usage process [Unknown]
  - Breast pain [Unknown]
  - Skin irritation [Unknown]
  - Erythema [Unknown]
  - Drug intolerance [Unknown]
  - Vaginal haemorrhage [Unknown]
